FAERS Safety Report 25905870 (Version 2)
Quarter: 2025Q4

REPORT INFORMATION
  Report Type: Spontaneous
  Country: EU (occurrence: None)
  Receive Date: 20251010
  Receipt Date: 20251020
  Transmission Date: 20260118
  Serious: Yes (Life-Threatening)
  Sender: ORGANON
  Company Number: None

PATIENT
  Age: 52 Year
  Sex: Male
  Weight: 107 kg

DRUGS (3)
  1. ALENDRONATE SODIUM [Suspect]
     Active Substance: ALENDRONATE SODIUM
     Indication: Product used for unknown indication
     Dosage: 1 PIECE 1X PER WEEK
     Dates: start: 20250912
  2. ABATACEPT [Suspect]
     Active Substance: ABATACEPT
     Indication: Rheumatic disorder
     Dosage: 1 DOSAGE FORM, QW (1X PER WEEK)
     Dates: start: 20250828
  3. DEXAMETHASONE [Suspect]
     Active Substance: DEXAMETHASONE
     Indication: Product used for unknown indication
     Dosage: UNK

REACTIONS (2)
  - Loss of consciousness [Recovering/Resolving]
  - Withdrawal syndrome [Unknown]
